FAERS Safety Report 16904771 (Version 1)
Quarter: 2019Q4

REPORT INFORMATION
  Report Type: Spontaneous
  Country: US (occurrence: US)
  Receive Date: 20190819
  Receipt Date: 20190819
  Transmission Date: 20200122
  Serious: No
  Sender: FDA-Public Use
  Company Number: None

PATIENT
  Age: 24 Year
  Sex: Male

DRUGS (1)
  1. ENBREL [Suspect]
     Active Substance: ETANERCEPT
     Dosage: ?          OTHER FREQUENCY:OTHER;?
     Dates: start: 201903

REACTIONS (4)
  - Pollakiuria [None]
  - Pain [None]
  - Appendix disorder [None]
  - Penile pain [None]

NARRATIVE: CASE EVENT DATE: 20190801
